APPROVED DRUG PRODUCT: LANTHANUM CARBONATE
Active Ingredient: LANTHANUM CARBONATE
Strength: EQ 500MG BASE
Dosage Form/Route: TABLET, CHEWABLE;ORAL
Application: A206868 | Product #001 | TE Code: AB
Applicant: INVAGEN PHARMACEUTICALS INC
Approved: Jan 24, 2022 | RLD: No | RS: No | Type: RX